FAERS Safety Report 24839515 (Version 3)
Quarter: 2025Q1

REPORT INFORMATION
  Report Type: Report from Study
  Country: US (occurrence: US)
  Receive Date: 20250114
  Receipt Date: 20250319
  Transmission Date: 20250409
  Serious: Yes (Hospitalization)
  Sender: NOVARTIS
  Company Number: US-002147023-NVSC2024US146795

PATIENT
  Age: 27 Year
  Sex: Female

DRUGS (3)
  1. KESIMPTA [Suspect]
     Active Substance: OFATUMUMAB
     Indication: Multiple sclerosis
     Dosage: 20 MG, QMO
     Route: 058
     Dates: start: 202403
  2. KESIMPTA [Suspect]
     Active Substance: OFATUMUMAB
     Route: 065
     Dates: start: 202409
  3. KESIMPTA [Suspect]
     Active Substance: OFATUMUMAB
     Route: 065
     Dates: end: 202411

REACTIONS (12)
  - Urinary tract infection [Unknown]
  - Sepsis [Unknown]
  - Hypersensitivity [Not Recovered/Not Resolved]
  - Eye pruritus [Unknown]
  - Pruritus [Unknown]
  - Illness [Recovering/Resolving]
  - Influenza [Unknown]
  - Infection [Unknown]
  - Pyrexia [Recovering/Resolving]
  - Asthenia [Unknown]
  - Sneezing [Unknown]
  - Feeling abnormal [Unknown]

NARRATIVE: CASE EVENT DATE: 20240601
